FAERS Safety Report 6813043-5 (Version None)
Quarter: 2010Q3

REPORT INFORMATION
  Report Type: 
  Country: None (occurrence: None)
  Receive Date: 20100701
  Receipt Date: 20100622
  Transmission Date: 20110219
  Serious: Yes (Life-Threatening, Hospitalization)
  Sender: FDA-Public Use
  Company Number: FR-BRISTOL-MYERS SQUIBB COMPANY-15170889

PATIENT
  Age: 65 Year
  Sex: Male

DRUGS (6)
  1. ERBITUX [Suspect]
     Indication: RECTOSIGMOID CANCER
     Route: 042
     Dates: start: 20050701, end: 20090201
  2. FLUOROURACIL [Suspect]
     Indication: RECTOSIGMOID CANCER
     Route: 042
     Dates: start: 20040801, end: 20100506
  3. OXALIPLATIN [Suspect]
     Indication: RECTOSIGMOID CANCER
     Dosage: AUG04-JAN05 AUG07-FEB08 AUG08-FEB09 JAN10-6MAY10
     Route: 042
     Dates: start: 20040801, end: 20100506
  4. AVASTIN [Suspect]
     Indication: RECTOSIGMOID CANCER
     Route: 042
     Dates: start: 20090301, end: 20100506
  5. IRINOTECAN HCL [Suspect]
     Indication: RECTOSIGMOID CANCER
     Dosage: JUL05-NOV05 MAR05-JAN10
     Route: 042
     Dates: start: 20050701, end: 20100101
  6. CALCIUM FOLINATE [Suspect]
     Indication: RECTOSIGMOID CANCER
     Dosage: AUG04-:IV JAN10-6MAY10:ORAL
     Route: 048
     Dates: end: 20100506

REACTIONS (1)
  - RENAL FAILURE ACUTE [None]
